FAERS Safety Report 20973203 (Version 1)
Quarter: 2022Q2

REPORT INFORMATION
  Report Type: Spontaneous
  Country: US (occurrence: US)
  Receive Date: 20220617
  Receipt Date: 20220617
  Transmission Date: 20220721
  Serious: No
  Sender: FDA-Public Use
  Company Number: US-ENDO PHARMACEUTICALS INC-2021-002175

PATIENT
  Age: 10 Year
  Sex: Male
  Weight: 43.991 kg

DRUGS (2)
  1. SUPPRELIN LA [Suspect]
     Active Substance: HISTRELIN ACETATE
     Indication: Gender dysphoria
     Dosage: UNK UNKNOWN, UNKNOWN
     Route: 058
     Dates: start: 20200507
  2. SUPPRELIN LA [Suspect]
     Active Substance: HISTRELIN ACETATE
     Indication: Gender dysphoria
     Dosage: UNK UNKNOWN, UNKNOWN
     Route: 058
     Dates: start: 20200507

REACTIONS (5)
  - Erythema [Unknown]
  - Off label use [Not Recovered/Not Resolved]
  - Drug ineffective for unapproved indication [Unknown]
  - Diarrhoea [Unknown]
  - Influenza like illness [Not Recovered/Not Resolved]

NARRATIVE: CASE EVENT DATE: 20200507
